FAERS Safety Report 7753402-X (Version None)
Quarter: 2011Q3

REPORT INFORMATION
  Report Type: 
  Country: None (occurrence: None)
  Receive Date: 20110915
  Receipt Date: 20110906
  Transmission Date: 20111222
  Serious: Yes (Other)
  Sender: FDA-Public Use
  Company Number: AU-JNJFOC-20110903418

PATIENT
  Sex: Male

DRUGS (5)
  1. STELARA [Suspect]
     Indication: PSORIATIC ARTHROPATHY
     Route: 058
     Dates: start: 20110202
  2. STELARA [Suspect]
     Route: 058
     Dates: start: 20110302
  3. STELARA [Suspect]
     Route: 058
     Dates: start: 20110525
  4. STELARA [Suspect]
     Route: 058
     Dates: start: 20110817
  5. METHOTREXATE [Concomitant]

REACTIONS (1)
  - PSORIATIC ARTHROPATHY [None]
